FAERS Safety Report 4655988-0 (Version None)
Quarter: 2005Q2

REPORT INFORMATION
  Report Type: 
  Country: None (occurrence: None)
  Receive Date: 20050505
  Receipt Date: 20050422
  Transmission Date: 20051028
  Serious: Yes (Hospitalization)
  Sender: FDA-Public Use
  Company Number: 2005064618

PATIENT
  Age: 60 Year
  Sex: Female

DRUGS (3)
  1. EPANUTIN (PHENYTOIN SODIUM) [Suspect]
     Indication: EPILEPSY
     Dosage: 300 MG (300 MG, 1 IN 1 D), ORAL
     Route: 048
  2. ERYTHROMYCIN (ERYTHROMYCIN) [Suspect]
     Indication: INFECTION
  3. ORCIPRENALINE SULFATE (ORCIPRENALINE SULFATE) [Concomitant]

REACTIONS (3)
  - ANTICONVULSANT DRUG LEVEL INCREASED [None]
  - DRUG INTERACTION [None]
  - INFECTION [None]
